FAERS Safety Report 14661958 (Version 1)
Quarter: 2018Q1

REPORT INFORMATION
  Report Type: Spontaneous
  Country: GB (occurrence: GB)
  Receive Date: 20180320
  Receipt Date: 20180320
  Transmission Date: 20180509
  Serious: Yes (Other)
  Sender: FDA-Public Use
  Company Number: GB-TEVA-2018-GB-870519

PATIENT
  Age: 35 Year
  Sex: Male
  Weight: 106 kg

DRUGS (2)
  1. PROCYCLIDINE [Concomitant]
     Active Substance: PROCYCLIDINE
     Route: 065
  2. OLANZAPINE. [Suspect]
     Active Substance: OLANZAPINE
     Indication: SCHIZOPHRENIA
     Dosage: 20 MILLIGRAM DAILY;
     Route: 048

REACTIONS (3)
  - Liver function test abnormal [Unknown]
  - Peripheral swelling [Unknown]
  - Oedema [Unknown]
